FAERS Safety Report 20763415 (Version 1)
Quarter: 2022Q2

REPORT INFORMATION
  Report Type: Spontaneous
  Country: DE (occurrence: DE)
  Receive Date: 20220428
  Receipt Date: 20220428
  Transmission Date: 20220721
  Serious: Yes (Hospitalization)
  Sender: FDA-Public Use
  Company Number: DE-NOVARTISPH-NVSC2022DE095314

PATIENT
  Age: 71 Year
  Sex: Female

DRUGS (1)
  1. EXELON [Suspect]
     Active Substance: RIVASTIGMINE TARTRATE
     Indication: Product used for unknown indication
     Dosage: UNK
     Route: 062

REACTIONS (2)
  - Disorientation [Not Recovered/Not Resolved]
  - Hyperkinesia [Not Recovered/Not Resolved]

NARRATIVE: CASE EVENT DATE: 20220418
